FAERS Safety Report 13022463 (Version 2)
Quarter: 2016Q4

REPORT INFORMATION
  Report Type: Spontaneous
  Country: FR (occurrence: FR)
  Receive Date: 20161213
  Receipt Date: 20161213
  Transmission Date: 20170207
  Serious: Yes (Other)
  Sender: FDA-Public Use
  Company Number: FR-TEVA-717667ROM

PATIENT
  Age: 79 Year
  Sex: Male

DRUGS (22)
  1. MOMETASONE TEVA 50 MCG/DOSE [Suspect]
     Active Substance: MOMETASONE
     Indication: SEASONAL ALLERGY
     Route: 045
  2. BETADINE SCRUB 4 % [Suspect]
     Active Substance: POVIDONE-IODINE
     Indication: PREOPERATIVE CARE
     Dosage: EXACT FORM: FOAMING SOLUTION FOR CUTANEOUS APPLICATION
     Route: 003
     Dates: start: 20161019, end: 20161020
  3. AZANTAC 300 MG [Suspect]
     Active Substance: RANITIDINE HYDROCHLORIDE
     Dosage: EXACT FORM: EFFERVESCENT TABLET
     Route: 048
     Dates: start: 20161020, end: 20161020
  4. DROPERIDOL AGUETTANT 2.5 MG/1ML [Suspect]
     Active Substance: DROPERIDOL
     Dosage: 1.25 MILLIGRAM DAILY;
     Route: 042
     Dates: start: 20161020, end: 20161020
  5. ESOMEPRAZOLE ARROW 40 MG [Suspect]
     Active Substance: ESOMEPRAZOLE
     Dosage: 40 MILLIGRAM DAILY; EXACT FORM: ENTERIC TABLET
     Route: 048
     Dates: end: 20161019
  6. MOXYDAR [Suspect]
     Active Substance: ALUMINUM HYDROXIDE\ALUMINUM PHOSPHATE\GUAR GUM\MAGNESIUM HYDROXIDE
     Dosage: EXACT FORM: TABLET FOR ORAL SUSPENSION
     Route: 048
  7. LOVENOX [Suspect]
     Active Substance: ENOXAPARIN SODIUM
     Dosage: .4 MILLIGRAM DAILY;
     Route: 058
     Dates: start: 20161021, end: 20161030
  8. KETOPROFENE MEDAC 100 MG/4 ML [Suspect]
     Active Substance: KETOPROFEN
     Dosage: EXACT FORM: CONCENTRATE FOR SOLUTION FOR INFUSION
     Dates: start: 20161020, end: 20161020
  9. ALPRAZOLAM MYLAN 0.25 MG [Suspect]
     Active Substance: ALPRAZOLAM
     Indication: ANXIETY
     Dosage: .5 MILLIGRAM DAILY;
     Route: 048
     Dates: start: 20161020, end: 20161020
  10. ALLOPURINOL ARROW 100 MG [Suspect]
     Active Substance: ALLOPURINOL
     Dosage: 100 MILLIGRAM DAILY;
     Route: 048
  11. DESLORATADINE ARROW 5 MG [Suspect]
     Active Substance: DESLORATADINE
     Indication: SEASONAL ALLERGY
     Route: 048
  12. PERFALGAN [Suspect]
     Active Substance: ACETAMINOPHEN
     Indication: PAIN
     Dosage: 4 GRAM DAILY;
     Route: 042
     Dates: start: 20161020
  13. DEXAMETHASONE MYLAN 20 MG/5 ML [Suspect]
     Active Substance: DEXAMETHASONE
     Dosage: 8 MILLIGRAM DAILY;
     Route: 042
     Dates: start: 20161020, end: 20161020
  14. LERCANIDIPINE ARROW 10 MG FILM-COATED TABLETS SCORED [Suspect]
     Active Substance: LERCANIDIPINE
     Indication: HYPERTENSION
     Dosage: 10 MILLIGRAM DAILY;
     Route: 048
  15. KETAMINE [Suspect]
     Active Substance: KETAMINE
     Route: 042
     Dates: start: 20161020, end: 20161020
  16. TAMSULOSINE MYLAN LP 0.4 MG [Suspect]
     Active Substance: TAMSULOSIN HYDROCHLORIDE
     Indication: BENIGN PROSTATIC HYPERPLASIA
     Dosage: EXACT FORM: PROLONGED-RELEASE CAPSULE
     Route: 048
  17. AVODART [Suspect]
     Active Substance: DUTASTERIDE
     Indication: BENIGN PROSTATIC HYPERPLASIA
     Dosage: EXACT FORM: SOFT CAPSULE
     Route: 048
  18. EFFERALGAN [Suspect]
     Active Substance: ACETAMINOPHEN
     Indication: PAIN
     Dosage: EXACT FORM: EFFERVESCENT TABLET
     Route: 048
  19. ORAMORPH [Suspect]
     Active Substance: MORPHINE SULFATE
     Indication: PAIN
     Route: 048
     Dates: start: 20161020
  20. PANTOPRAZOLE SODIUM. [Suspect]
     Active Substance: PANTOPRAZOLE SODIUM
     Dosage: 1 DOSAGE FORMS DAILY;
     Route: 048
     Dates: start: 20161020
  21. GLUCOSE FRESENIUS 5% [Suspect]
     Active Substance: DEXTROSE
     Route: 042
     Dates: start: 20161020
  22. ONDANSETRON ACCORD [Suspect]
     Active Substance: ONDANSETRON
     Route: 042
     Dates: start: 20161020, end: 20161020

REACTIONS (3)
  - Erythema [Not Recovered/Not Resolved]
  - Thermal burn [Not Recovered/Not Resolved]
  - Dermatitis bullous [Not Recovered/Not Resolved]

NARRATIVE: CASE EVENT DATE: 20161021
